FAERS Safety Report 5897282-6 (Version None)
Quarter: 2008Q3

REPORT INFORMATION
  Report Type: 
  Country: None (occurrence: None)
  Receive Date: 20080924
  Receipt Date: 20080924
  Transmission Date: 20090109
  Serious: Yes (Other)
  Sender: FDA-Public Use
  Company Number: None

PATIENT
  Age: 65 Year
  Sex: Female
  Weight: 58.9676 kg

DRUGS (1)
  1. NITROFURANTOIN MACROCRYSTALLINE [Suspect]
     Indication: URINARY TRACT INFECTION
     Dosage: 100 MG TWICE A DAY ORAL
     Route: 048
     Dates: start: 20080813, end: 20080819

REACTIONS (11)
  - ABDOMINAL DISTENSION [None]
  - ABDOMINAL PAIN [None]
  - ABDOMINAL PAIN UPPER [None]
  - ANOREXIA [None]
  - DIARRHOEA [None]
  - DISCOMFORT [None]
  - ERUCTATION [None]
  - FLATULENCE [None]
  - INSOMNIA [None]
  - MALAISE [None]
  - NAUSEA [None]
